FAERS Safety Report 4333775-0 (Version None)
Quarter: 2004Q2

REPORT INFORMATION
  Report Type: 
  Country: None (occurrence: None)
  Receive Date: 20040402
  Receipt Date: 20040316
  Transmission Date: 20050107
  Serious: Yes (Other)
  Sender: FDA-Public Use
  Company Number: A0502921A

PATIENT
  Age: 71 Year
  Sex: Female
  Weight: 87.9978 kg

DRUGS (4)
  1. NICORETTE [Suspect]
     Indication: EX-SMOKER
     Dosage: 4 MG/AS REQUIRED/ TRANSBUCCAL
     Route: 002
     Dates: start: 20010101
  2. ALENDRONATE SODIUM [Concomitant]
  3. ATORVASTATIN CALCIUM [Concomitant]
  4. HYDROCHLOROTHIAZIDE [Concomitant]

REACTIONS (1)
  - DEPENDENCE [None]
